FAERS Safety Report 25170488 (Version 5)
Quarter: 2025Q3

REPORT INFORMATION
  Report Type: Report from Study
  Country: CA (occurrence: CA)
  Receive Date: 20250408
  Receipt Date: 20250810
  Transmission Date: 20251021
  Serious: Yes (Other)
  Sender: ALEXION PHARMACEUTICALS
  Company Number: CA-AstraZeneca-CH-00841698A

PATIENT
  Sex: Female

DRUGS (5)
  1. CAPIVASERTIB [Suspect]
     Active Substance: CAPIVASERTIB
     Indication: Breast cancer metastatic
     Dosage: 500 MILLIGRAM, Q4W
     Route: 065
     Dates: start: 20240724
  2. CAPIVASERTIB [Suspect]
     Active Substance: CAPIVASERTIB
     Dosage: 500 MILLIGRAM, Q3W
     Route: 065
     Dates: start: 202407, end: 20250402
  3. CAPIVASERTIB [Suspect]
     Active Substance: CAPIVASERTIB
     Dosage: 320 MILLIGRAM, BID
     Dates: end: 202504
  4. FASLODEX [Suspect]
     Active Substance: FULVESTRANT
     Indication: Breast cancer metastatic
     Dosage: 500 MILLIGRAM, Q3W
     Dates: start: 20240724, end: 20250402
  5. FASLODEX [Suspect]
     Active Substance: FULVESTRANT

REACTIONS (3)
  - Pulmonary oedema [Unknown]
  - Drug ineffective [Unknown]
  - Malignant neoplasm progression [Unknown]
